FAERS Safety Report 7517877-3 (Version None)
Quarter: 2011Q2

REPORT INFORMATION
  Report Type: 
  Country: None (occurrence: None)
  Receive Date: 20110602
  Receipt Date: 20110505
  Transmission Date: 20111010
  Serious: Yes (Other)
  Sender: FDA-Public Use
  Company Number: US-BAYER-201037313NA

PATIENT
  Age: 32 Year
  Weight: 63.492 kg

DRUGS (1)
  1. DROSPIRENONE AND ETHINYL ESTRADIOL [Suspect]
     Indication: HORMONE SUPPRESSION THERAPY
     Dosage: UNK
     Route: 048
     Dates: start: 20090501, end: 20090702

REACTIONS (3)
  - PELVIC VENOUS THROMBOSIS [None]
  - PAIN [None]
  - EMOTIONAL DISTRESS [None]
